FAERS Safety Report 10050570 (Version 1)
Quarter: 2014Q2

REPORT INFORMATION
  Report Type: Spontaneous
  Country: US (occurrence: US)
  Receive Date: 20140401
  Receipt Date: 20140401
  Transmission Date: 20141212
  Serious: No
  Sender: FDA-Public Use
  Company Number: US-ASTRAZENECA-2013SE93087

PATIENT
  Age: 57 Year
  Sex: Female
  Weight: 71.7 kg

DRUGS (2)
  1. NEXIUM [Suspect]
     Indication: GASTROOESOPHAGEAL REFLUX DISEASE
     Route: 048
  2. ALEVE [Concomitant]
     Indication: INFLAMMATION
     Dosage: UNKNOWN PRN
     Route: 048

REACTIONS (3)
  - Inflammation [Unknown]
  - Dyspepsia [Unknown]
  - Extra dose administered [Unknown]
